FAERS Safety Report 8296196-4 (Version None)
Quarter: 2012Q2

REPORT INFORMATION
  Report Type: 
  Country: None (occurrence: None)
  Receive Date: 20120418
  Receipt Date: 20120409
  Transmission Date: 20120825
  Serious: Yes (Other)
  Sender: FDA-Public Use
  Company Number: US-ELI_LILLY_AND_COMPANY-US201204003759

PATIENT
  Sex: Male

DRUGS (2)
  1. HUMALOG MIX 75/25 [Suspect]
     Dosage: 35 U, BID
     Dates: start: 20110101
  2. HUMALOG MIX 75/25 [Suspect]
     Indication: DIABETES MELLITUS
     Dosage: 35 U, BID

REACTIONS (4)
  - MEDICATION ERROR [None]
  - DRUG DOSE OMISSION [None]
  - CARDIAC OPERATION [None]
  - BLOOD GLUCOSE DECREASED [None]
